FAERS Safety Report 21514729 (Version 2)
Quarter: 2022Q4

REPORT INFORMATION
  Report Type: Spontaneous
  Country: DE (occurrence: DE)
  Receive Date: 20221027
  Receipt Date: 20221027
  Transmission Date: 20230113
  Serious: Yes (Death, Life-Threatening, Hospitalization, Other)
  Sender: FDA-Public Use
  Company Number: DE-PFIZER INC-PV202200082601

PATIENT
  Age: 30 Year
  Sex: Male
  Weight: 70 kg

DRUGS (21)
  1. AZITHROMYCIN [Interacting]
     Active Substance: AZITHROMYCIN
     Indication: Pneumonia
     Dosage: 500 MG, 1X/DAY
  2. AZITHROMYCIN [Interacting]
     Active Substance: AZITHROMYCIN
     Indication: Pneumonia cytomegaloviral
  3. MEROPENEM [Interacting]
     Active Substance: MEROPENEM
     Indication: Pneumocystis jirovecii pneumonia
     Dosage: 2 G, 3X/DAY
  4. MEROPENEM [Interacting]
     Active Substance: MEROPENEM
     Indication: Candida infection
     Dosage: 1 G, 2X/DAY (ON DAY 7)
  5. MEROPENEM [Interacting]
     Active Substance: MEROPENEM
     Indication: Pneumonia cytomegaloviral
  6. HYDROCORTISONE SODIUM SUCCINATE [Interacting]
     Active Substance: HYDROCORTISONE SODIUM SUCCINATE
     Indication: Pneumocystis jirovecii pneumonia
     Dosage: 200 MG, DAILY
  7. HYDROCORTISONE SODIUM SUCCINATE [Interacting]
     Active Substance: HYDROCORTISONE SODIUM SUCCINATE
     Indication: Candida infection
  8. HYDROCORTISONE SODIUM SUCCINATE [Interacting]
     Active Substance: HYDROCORTISONE SODIUM SUCCINATE
     Indication: Pneumonia cytomegaloviral
  9. PIPERACILLIN SODIUM\TAZOBACTAM SODIUM [Interacting]
     Active Substance: PIPERACILLIN SODIUM\TAZOBACTAM SODIUM
     Indication: Pneumonia
     Dosage: 4.5 G, 3X/DAY (PRESENTATION TO THE ER)
  10. PIPERACILLIN SODIUM\TAZOBACTAM SODIUM [Interacting]
     Active Substance: PIPERACILLIN SODIUM\TAZOBACTAM SODIUM
     Indication: Pneumonia cytomegaloviral
  11. MOXIFLOXACIN [Interacting]
     Active Substance: MOXIFLOXACIN
     Indication: Pneumocystis jirovecii pneumonia
     Dosage: 400 MG, 1X/DAY
  12. MOXIFLOXACIN [Interacting]
     Active Substance: MOXIFLOXACIN
     Indication: Candida infection
  13. MOXIFLOXACIN [Interacting]
     Active Substance: MOXIFLOXACIN
     Indication: Pneumonia cytomegaloviral
  14. SULFAMETHOXAZOLE\TRIMETHOPRIM [Interacting]
     Active Substance: SULFAMETHOXAZOLE\TRIMETHOPRIM
     Indication: Pneumocystis jirovecii pneumonia
     Dosage: 1920 MG, 3X/DAY (SULFAMETHOXAZOLE (22.85 MG/KG BODY WEIGHT), TRIMETHOPRIM (4.57 MG/KG BODY WEIGHT))
  15. SULFAMETHOXAZOLE\TRIMETHOPRIM [Interacting]
     Active Substance: SULFAMETHOXAZOLE\TRIMETHOPRIM
     Indication: Candida infection
  16. SULFAMETHOXAZOLE\TRIMETHOPRIM [Interacting]
     Active Substance: SULFAMETHOXAZOLE\TRIMETHOPRIM
     Indication: Pneumonia cytomegaloviral
  17. GANCICLOVIR [Interacting]
     Active Substance: GANCICLOVIR
     Indication: Pneumonia cytomegaloviral
     Dosage: 200 MG, 2X/DAY
  18. GENVOYA [Interacting]
     Active Substance: COBICISTAT\ELVITEGRAVIR\EMTRICITABINE\TENOFOVIR ALAFENAMIDE FUMARATE
     Indication: Antiretroviral therapy
     Dosage: UNK (150 MG ELVITEGRAVIR, 150 MG COBICISTAT, 200 MG EMTRICITABINE, AND 10 MG TENOFOVIR ALAFENAMIDE)
  19. CASPOFUNGIN [Interacting]
     Active Substance: CASPOFUNGIN
     Indication: Pneumocystis jirovecii pneumonia
     Dosage: 50 MG, 1X/DAY (ON DAY 4)
  20. CASPOFUNGIN [Interacting]
     Active Substance: CASPOFUNGIN
     Indication: Candida infection
  21. CASPOFUNGIN [Interacting]
     Active Substance: CASPOFUNGIN
     Indication: Pneumonia cytomegaloviral

REACTIONS (3)
  - Drug ineffective [Fatal]
  - Multiple organ dysfunction syndrome [Fatal]
  - Drug interaction [Fatal]
